FAERS Safety Report 8550754 (Version 3)
Quarter: 2012Q4

REPORT INFORMATION
  Report Type: Spontaneous
  Country: GB (occurrence: None)
  Receive Date: 20120427
  Receipt Date: 20120906
  Transmission Date: 20130627
  Serious: Yes (Death, Other)
  Sender: FDA-Public Use
  Company Number: EU-2012-10125

PATIENT
  Sex: Female

DRUGS (14)
  1. SAMSCA [Suspect]
     Indication: HYPONATRAEMIA
     Route: 048
     Dates: start: 20120319, end: 20120321
  2. SAMSCA [Suspect]
     Indication: SIADH
     Route: 048
     Dates: start: 20120319, end: 20120321
  3. SAMSCA [Suspect]
     Indication: UROSEPSIS
     Route: 048
     Dates: start: 20120319, end: 20120321
  4. SALINE (SALINE) [Concomitant]
     Indication: INAPPROPRIATE ANTIDIURETIC HORMONE SECRETION
  5. BISOPROLOL (BISOPROLOL) [Concomitant]
  6. WARFARIN (WARFARIN) [Concomitant]
  7. NICORANDILE (NICORANDIL) [Concomitant]
  8. ISOSORBIDE MONONITRATE (ISOSORBIDE MONONITRATE) [Concomitant]
  9. ATORVASTATIN (ATORVASTATIN) [Concomitant]
  10. ASPIRIN (ACETYLSALICYLIC ACID) [Concomitant]
  11. OMEPRAZOLE (OMEPRAZOLE) [Concomitant]
  12. ADCAL D3 (CALCIUM CARBONATE, COLECALCIFEROL) [Concomitant]
  13. TRIMETHOPRIM (TRIMETHOPRIM) [Concomitant]
  14. ERTAPENEM (ERTAPENEM) [Concomitant]

REACTIONS (5)
  - Urinary tract infection [None]
  - Sepsis [None]
  - Glomerular filtration rate decreased [None]
  - Urine output decreased [None]
  - Blood sodium decreased [None]
